FAERS Safety Report 9900421 (Version 2)
Quarter: 2014Q1

REPORT INFORMATION
  Report Type: Spontaneous
  Country: US (occurrence: US)
  Receive Date: 20140217
  Receipt Date: 20140217
  Transmission Date: 20141002
  Serious: Yes (Other)
  Sender: FDA-Public Use
  Company Number: US-GE HEALTHCARE MEDICAL DIAGNOSTICS-OSCN-PR-0806S-0366

PATIENT
  Age: 48 Year
  Sex: Male

DRUGS (25)
  1. OMNISCAN [Suspect]
     Indication: PRODUCT USED FOR UNKNOWN INDICATION
  2. GADOLINIUM (UNSPECIFIED) [Suspect]
     Indication: OSTEOMYELITIS
     Dates: start: 20021105, end: 20021105
  3. GADOLINIUM (UNSPECIFIED) [Suspect]
     Indication: DIABETIC FOOT
     Route: 042
     Dates: start: 20050114, end: 20050114
  4. MAGNEVIST [Suspect]
     Indication: PRODUCT USED FOR UNKNOWN INDICATION
     Route: 042
     Dates: start: 20021016, end: 20021016
  5. MAGNEVIST [Suspect]
     Route: 042
     Dates: start: 20021115, end: 20021115
  6. MAGNEVIST [Suspect]
     Route: 042
     Dates: start: 20040716, end: 20040716
  7. MAGNEVIST [Suspect]
     Route: 042
     Dates: start: 20050125, end: 20050125
  8. PROHANCE [Suspect]
     Indication: DIABETIC FOOT
     Route: 042
     Dates: start: 20021016, end: 20021016
  9. PROHANCE [Suspect]
     Indication: OSTEOMYELITIS
  10. OPTIMARK [Suspect]
     Indication: PRODUCT USED FOR UNKNOWN INDICATION
  11. MULTIHANCE [Suspect]
     Indication: PRODUCT USED FOR UNKNOWN INDICATION
  12. NOVOLIN R [Concomitant]
  13. INSULIN [Concomitant]
  14. FOSRENOL [Concomitant]
  15. COUMADIN [Concomitant]
  16. CLONIDINE [Concomitant]
  17. ACCUPRIL [Concomitant]
  18. TEMAZEPAM [Concomitant]
  19. RENAGEL [Concomitant]
  20. PHOSLO [Concomitant]
  21. DIATX [Concomitant]
  22. VITAMINS NOS [Concomitant]
  23. PROCRIT [Concomitant]
  24. MINOXIDIL [Concomitant]
  25. LASIX [Concomitant]

REACTIONS (1)
  - Nephrogenic systemic fibrosis [Not Recovered/Not Resolved]
